FAERS Safety Report 10026659 (Version 3)
Quarter: 2014Q2

REPORT INFORMATION
  Report Type: Spontaneous
  Country: DE (occurrence: DE)
  Receive Date: 20140321
  Receipt Date: 20140529
  Transmission Date: 20141212
  Serious: Yes (Other)
  Sender: FDA-Public Use
  Company Number: DE-RANBAXY-2014RR-78995

PATIENT
  Age: 65 Year
  Sex: Female
  Weight: 110 kg

DRUGS (6)
  1. CEFUROX BASICS 250 MG TABLETTEN [Suspect]
     Indication: BRONCHITIS
     Dosage: 1 TABLET OF 250 MG
     Route: 048
     Dates: start: 20140307, end: 20140307
  2. THYRONAJOD 75 HENNING [Concomitant]
     Indication: PRODUCT USED FOR UNKNOWN INDICATION
     Dosage: 1/2 IN THE MORNING
     Route: 065
     Dates: start: 2013
  3. CARMEN [Concomitant]
     Indication: PRODUCT USED FOR UNKNOWN INDICATION
     Dosage: 1/2 IN THE MORNING, 1/2 IN THE EVENING
     Route: 065
     Dates: start: 2013
  4. BENAZEPRIL HEXAL [Concomitant]
     Indication: PRODUCT USED FOR UNKNOWN INDICATION
     Dosage: 1/2 IN THE MORNING, 1/2 IN THE EVENING
     Route: 065
     Dates: start: 2013
  5. BISOHEXAL [Concomitant]
     Indication: PRODUCT USED FOR UNKNOWN INDICATION
     Dosage: 1/2 IN THE MORNING, 1/2 IN THE EVENING
     Route: 065
     Dates: start: 2013
  6. MARCUMAR [Concomitant]
     Indication: PRODUCT USED FOR UNKNOWN INDICATION
     Dosage: ACCORDING TO INR
     Route: 065
     Dates: start: 2013

REACTIONS (2)
  - Swollen tongue [Recovered/Resolved]
  - Paraesthesia oral [Recovered/Resolved]
